FAERS Safety Report 12913915 (Version 3)
Quarter: 2021Q3

REPORT INFORMATION
  Report Type: Report from Study
  Country: US (occurrence: US)
  Receive Date: 20161104
  Receipt Date: 20210914
  Transmission Date: 20211014
  Serious: Yes (Other)
  Sender: FDA-Public Use
  Company Number: US-GILEAD-2016-0241702

PATIENT
  Age: 51 Year
  Sex: Female

DRUGS (1)
  1. SOFOSBUVIR [Suspect]
     Active Substance: SOFOSBUVIR
     Indication: CHRONIC HEPATITIS C
     Dosage: 400 MG, UNK
     Route: 048
     Dates: start: 20160803

REACTIONS (9)
  - Pneumonia [Unknown]
  - Balance disorder [Unknown]
  - Mood swings [Unknown]
  - Fatigue [Unknown]
  - Feeling cold [Unknown]
  - Eating disorder [Unknown]
  - Product dose omission issue [Unknown]
  - Insomnia [Unknown]
  - Gastrooesophageal reflux disease [Unknown]
